FAERS Safety Report 7351329-9 (Version None)
Quarter: 2011Q1

REPORT INFORMATION
  Report Type: 
  Country: None (occurrence: None)
  Receive Date: 20110314
  Receipt Date: 20110228
  Transmission Date: 20110831
  Serious: Yes (Other)
  Sender: FDA-Public Use
  Company Number: PHHY2011MY15860

PATIENT

DRUGS (5)
  1. ZOMETA [Suspect]
     Indication: METASTASES TO BONE
     Dosage: 4 MG, EVERY 3 WEEKS
  2. ADRIAMYCIN + CYCLOPHOSPHAMIDE [Concomitant]
  3. ARIMIDEX [Concomitant]
  4. HERCEPTIN [Concomitant]
  5. TAXOL [Concomitant]

REACTIONS (2)
  - OSTEOMYELITIS [None]
  - BONE DISORDER [None]
